FAERS Safety Report 6628762-3 (Version None)
Quarter: 2010Q1

REPORT INFORMATION
  Report Type: 
  Country: None (occurrence: None)
  Receive Date: 20100311
  Receipt Date: 20100308
  Transmission Date: 20100710
  Serious: Yes (Life-Threatening, Hospitalization, Other)
  Sender: FDA-Public Use
  Company Number: JP-BAYER-200911135BYL

PATIENT
  Age: 68 Year
  Sex: Male
  Weight: 50 kg

DRUGS (33)
  1. NEXAVAR [Suspect]
     Indication: RENAL CELL CARCINOMA
     Dosage: TOTAL DAILY DOSE: 200 MG  UNIT DOSE: 200 MG
     Route: 048
     Dates: start: 20080422, end: 20080427
  2. NEXAVAR [Suspect]
     Dosage: TOTAL DAILY DOSE: 400 MG  UNIT DOSE: 200 MG
     Route: 048
     Dates: start: 20080428, end: 20080915
  3. NEXAVAR [Suspect]
     Dosage: UNIT DOSE: 200 MG
     Route: 048
     Dates: start: 20081006, end: 20081011
  4. NEXAVAR [Suspect]
     Dosage: UNIT DOSE: 200 MG
     Route: 048
     Dates: start: 20080918, end: 20081002
  5. NEXAVAR [Suspect]
     Dosage: UNIT DOSE: 200 MG
     Route: 048
     Dates: start: 20081116, end: 20081122
  6. NEXAVAR [Suspect]
     Dosage: UNIT DOSE: 200 MG
     Route: 048
     Dates: start: 20081202, end: 20081203
  7. NEXAVAR [Suspect]
     Dosage: AS USED: 200 MG  UNIT DOSE: 200 MG
     Route: 048
     Dates: start: 20090514, end: 20090623
  8. NEXAVAR [Suspect]
     Dosage: TOTAL DAILY DOSE: 200 MG  UNIT DOSE: 200 MG
     Route: 048
     Dates: start: 20090717
  9. NEXAVAR [Suspect]
     Dosage: TOTAL DAILY DOSE: 200 MG  UNIT DOSE: 200 MG
     Route: 048
     Dates: start: 20081205, end: 20090410
  10. NEXAVAR [Suspect]
     Dosage: UNIT DOSE: 200 MG
     Route: 048
     Dates: start: 20081127, end: 20081129
  11. NEXAVAR [Suspect]
     Dosage: UNIT DOSE: 200 MG
     Route: 048
     Dates: start: 20081024, end: 20081113
  12. NEXAVAR [Suspect]
     Dosage: UNIT DOSE: 200 MG
     Route: 048
     Dates: start: 20081014, end: 20081021
  13. DEPAKENE [Suspect]
     Indication: METASTASES TO CENTRAL NERVOUS SYSTEM
     Dosage: TOTAL DAILY DOSE: 800 MG  UNIT DOSE: 200 MG
     Route: 048
     Dates: start: 20090424
  14. ALLOPURINOL [Suspect]
     Indication: DRUG USE FOR UNKNOWN INDICATION
     Dosage: TOTAL DAILY DOSE: 100 MG  UNIT DOSE: 100 MG
     Route: 048
     Dates: start: 20090519
  15. TAKEPRON [Suspect]
     Indication: PROPHYLAXIS AGAINST GASTROINTESTINAL ULCER
     Dosage: TOTAL DAILY DOSE: 15 MG  UNIT DOSE: 15 MG
     Route: 048
     Dates: start: 20090502
  16. JUZENTAIHOTO [Concomitant]
     Dosage: TOTAL DAILY DOSE: 7.5 G
     Route: 048
     Dates: start: 20061003, end: 20090613
  17. MARUYAMA VACCINE [Concomitant]
     Route: 058
  18. DIOVAN [Concomitant]
     Dosage: TOTAL DAILY DOSE: 80 MG  UNIT DOSE: 80 MG
     Route: 048
     Dates: start: 20090410
  19. LASIX [Concomitant]
     Dosage: TOTAL DAILY DOSE: 20 MG  UNIT DOSE: 20 MG
     Route: 048
     Dates: start: 20090410
  20. GASTER D [Concomitant]
     Indication: GASTRITIS PROPHYLAXIS
     Dosage: TOTAL DAILY DOSE: 40 MG  UNIT DOSE: 20 MG
     Route: 048
     Dates: start: 20090424
  21. HARNAL D [Concomitant]
     Dosage: TOTAL DAILY DOSE: 0.2 MG  UNIT DOSE: 0.2 MG
     Route: 048
     Dates: start: 20090410
  22. BORRAZA-G [Concomitant]
     Indication: PAIN
     Route: 054
     Dates: start: 20090623
  23. PARIET [Concomitant]
     Indication: PROPHYLAXIS AGAINST GASTROINTESTINAL ULCER
     Dosage: TOTAL DAILY DOSE: 10 MG  UNIT DOSE: 10 MG
     Route: 048
     Dates: start: 20090701
  24. KENEI G [Concomitant]
     Indication: CONSTIPATION
     Route: 054
     Dates: start: 20090721
  25. CRESTOR [Concomitant]
     Dosage: TOTAL DAILY DOSE: 2.5 MG  UNIT DOSE: 2.5 MG
     Route: 048
     Dates: start: 20090620
  26. ZETIA [Concomitant]
     Dosage: TOTAL DAILY DOSE: 10 MG  UNIT DOSE: 10 MG
     Route: 048
     Dates: start: 20090612
  27. POSTERISAN [Concomitant]
     Dosage: AT ITCHING AND PERIANAL REGION
     Route: 061
     Dates: start: 20090622
  28. GLUCOSE [Concomitant]
     Indication: PROPHYLAXIS
     Route: 048
     Dates: start: 20090613
  29. CINAL [Concomitant]
     Dosage: TOTAL DAILY DOSE: 3 G
     Route: 048
     Dates: start: 20090413
  30. ADONA [Concomitant]
     Dosage: TOTAL DAILY DOSE: 90 MG  UNIT DOSE: 30 MG
     Route: 048
     Dates: start: 20090413
  31. ITRIZOLE [Concomitant]
     Indication: FUNGAL INFECTION
     Dosage: UNIT DOSE: 1 %
     Route: 048
     Dates: start: 20090705
  32. ITRIZOLE [Concomitant]
     Dosage: TOTAL DAILY DOSE: 100 MG  UNIT DOSE: 50 MG
     Route: 048
     Dates: start: 20090626
  33. BIOFERMIN [Concomitant]
     Dosage: TOTAL DAILY DOSE: 3 G
     Route: 048
     Dates: start: 20090623

REACTIONS (17)
  - AGRANULOCYTOSIS [None]
  - ALOPECIA [None]
  - BRAIN CANCER METASTATIC [None]
  - CONSTIPATION [None]
  - DIABETES MELLITUS [None]
  - DIARRHOEA [None]
  - DYSPHONIA [None]
  - DYSPNOEA [None]
  - ERYTHEMA [None]
  - HYPOPHOSPHATAEMIA [None]
  - LEUKODERMA [None]
  - PAIN IN EXTREMITY [None]
  - PALMAR-PLANTAR ERYTHRODYSAESTHESIA SYNDROME [None]
  - PARAESTHESIA ORAL [None]
  - PHOTOSENSITIVITY REACTION [None]
  - PLATELET COUNT DECREASED [None]
  - PROTEIN URINE [None]
